FAERS Safety Report 5418218-8 (Version None)
Quarter: 2007Q3

REPORT INFORMATION
  Report Type: 
  Country: None (occurrence: None)
  Receive Date: 20070817
  Receipt Date: 20070807
  Transmission Date: 20080115
  Serious: Yes (Life-Threatening, Hospitalization)
  Sender: FDA-Public Use
  Company Number: US-ROCHE-508571

PATIENT
  Age: 34 Year
  Sex: Female
  Weight: 78.1 kg

DRUGS (5)
  1. ACCUTANE [Suspect]
     Route: 048
     Dates: start: 20070511, end: 20070711
  2. ACCUTANE [Suspect]
     Route: 048
     Dates: start: 20070409, end: 20070511
  3. ACCUTANE [Suspect]
     Route: 048
     Dates: start: 20070115, end: 20070409
  4. LEXAPRO [Concomitant]
     Route: 048
  5. SEROQUEL [Concomitant]
     Dosage: DOSE TAKEN AT HOUR OF SLEEP.
     Route: 048

REACTIONS (7)
  - DEPRESSION [None]
  - HALLUCINATION, AUDITORY [None]
  - HALLUCINATION, VISUAL [None]
  - HOMICIDAL IDEATION [None]
  - MYALGIA [None]
  - RASH PUSTULAR [None]
  - SUICIDAL IDEATION [None]
